FAERS Safety Report 12954288 (Version 1)
Quarter: 2016Q4

REPORT INFORMATION
  Report Type: Spontaneous
  Country: US (occurrence: US)
  Receive Date: 20161118
  Receipt Date: 20161118
  Transmission Date: 20170207
  Serious: No
  Sender: FDA-Public Use
  Company Number: US-DENTSPLY PHARMACEUTICAL-2016SCDP000168

PATIENT
  Age: 59 Year
  Sex: Female

DRUGS (1)
  1. CITANEST FORTE [Suspect]
     Active Substance: EPINEPHRINE BITARTRATE\PRILOCAINE HYDROCHLORIDE
     Indication: LOCAL ANAESTHESIA
     Dosage: ONE TO TWO CARPULES
     Route: 004
     Dates: start: 20160804, end: 20160804

REACTIONS (1)
  - Palpitations [Unknown]

NARRATIVE: CASE EVENT DATE: 20160804
